FAERS Safety Report 21114681 (Version 1)
Quarter: 2022Q3

REPORT INFORMATION
  Report Type: Spontaneous
  Country: US (occurrence: US)
  Receive Date: 20220721
  Receipt Date: 20220721
  Transmission Date: 20221027
  Serious: No
  Sender: FDA-Public Use
  Company Number: US-MEDEXUS PHARMA, INC.-2021MED00297

PATIENT
  Age: 59 Year
  Sex: Male
  Weight: 97.506 kg

DRUGS (5)
  1. RASUVO [Suspect]
     Active Substance: METHOTREXATE SODIUM
     Indication: Rheumatoid arthritis
     Dosage: 20 MG INJECTED IN EITHER RIGHT OR LEFT THIGH, 1X/WEEK ON SATURDAYS
     Dates: start: 2020
  2. PREDNISONE [Concomitant]
     Active Substance: PREDNISONE
  3. HYDROXYCHLOROQUINE [Concomitant]
     Active Substance: HYDROXYCHLOROQUINE
  4. CELEBREX [Concomitant]
     Active Substance: CELECOXIB
  5. UNSPECIFED MEDICATIONS FOR THYROID AND PARATHYROID [Concomitant]

REACTIONS (4)
  - Skin discolouration [Recovered/Resolved]
  - Accidental exposure to product [Recovered/Resolved]
  - Device mechanical issue [Recovered/Resolved]
  - Device leakage [Recovered/Resolved]

NARRATIVE: CASE EVENT DATE: 20211025
